FAERS Safety Report 19213464 (Version 1)
Quarter: 2021Q2

REPORT INFORMATION
  Report Type: Report from Study
  Country: FR (occurrence: FR)
  Receive Date: 20210504
  Receipt Date: 20210504
  Transmission Date: 20210717
  Serious: Yes (Other)
  Sender: FDA-Public Use
  Company Number: NVSC2021FR094542

PATIENT
  Sex: Male

DRUGS (1)
  1. REVOLADE [Suspect]
     Active Substance: ELTROMBOPAG OLAMINE
     Indication: FOETAL EXPOSURE DURING PREGNANCY
     Dosage: MATERNAL EXPOSURE DURING PREGNANCY: 50MG
     Route: 064
     Dates: start: 20190215, end: 20200121

REACTIONS (2)
  - Foetal exposure during pregnancy [Unknown]
  - Pyelocaliectasis [Unknown]
